FAERS Safety Report 6598542-6 (Version None)
Quarter: 2010Q1

REPORT INFORMATION
  Report Type: 
  Country: None (occurrence: None)
  Receive Date: 20100224
  Receipt Date: 20050126
  Transmission Date: 20100710
  Serious: No
  Sender: FDA-Public Use
  Company Number: US-ALLERGAN-200411288

PATIENT
  Age: 52 Year
  Sex: Female
  Weight: 59.91 kg

DRUGS (1)
  1. BOTOX COSMETIC [Suspect]
     Indication: SKIN WRINKLING
     Dosage: 30UNITS, PRN
     Route: 030
     Dates: start: 20041214

REACTIONS (3)
  - DYSPHAGIA [None]
  - HEADACHE [None]
  - NECK PAIN [None]
